FAERS Safety Report 13269377 (Version 1)
Quarter: 2017Q1

REPORT INFORMATION
  Report Type: Spontaneous
  Country: US (occurrence: US)
  Receive Date: 20170224
  Receipt Date: 20170224
  Transmission Date: 20170428
  Serious: Yes (Death, Other)
  Sender: FDA-Public Use
  Company Number: US-ASTELLAS-2017US006905

PATIENT
  Age: 13 Year
  Sex: Male

DRUGS (8)
  1. MYCOPHENOLATE [Suspect]
     Active Substance: MYCOPHENOLIC ACID
     Indication: PROPHYLAXIS AGAINST GRAFT VERSUS HOST DISEASE
     Dosage: UNK UNK, UNKNOWN FREQ.
     Route: 065
  2. AZACITIDINE. [Concomitant]
     Active Substance: AZACITIDINE
     Indication: BLAST CRISIS IN MYELOGENOUS LEUKAEMIA
  3. BUSULFAN. [Concomitant]
     Active Substance: BUSULFAN
     Indication: STEM CELL TRANSPLANT
     Dosage: 0.8 MG/KG, EVERY 12 HOURS (FOR 2 DAYS)
     Route: 042
  4. FLUDARABINE [Concomitant]
     Active Substance: FLUDARABINE PHOSPHATE
     Indication: STEM CELL TRANSPLANT
     Dosage: 30 MG/M2, ONCE DAILY (FOR 5 DAYS)
     Route: 042
  5. TACROLIMUS. [Suspect]
     Active Substance: TACROLIMUS
     Indication: PROPHYLAXIS AGAINST GRAFT VERSUS HOST DISEASE
     Dosage: UNK UNK, UNKNOWN FREQ.
     Route: 065
  6. CYCLOPHOSPHAMIDE. [Concomitant]
     Active Substance: CYCLOPHOSPHAMIDE
     Indication: STEM CELL TRANSPLANT
     Dosage: 10 MG/KG, ONCE DAILY (FOR 2 DAYS)
     Route: 065
  7. ATG RABBIT [Concomitant]
     Active Substance: LAPINE T-LYMPHOCYTE IMMUNE GLOBULIN
     Indication: STEM CELL TRANSPLANT
     Dosage: 2.5 MG/KG, ONCE DAILY (FOR 4 DAYS)
     Route: 042
  8. AZACITIDINE. [Concomitant]
     Active Substance: AZACITIDINE
     Indication: BONE MARROW FAILURE
     Dosage: 50 MG/M2, UNKNOWN FREQ. (7 DAYS EVERY 21 DAYS)
     Route: 042

REACTIONS (7)
  - Acute kidney injury [Recovered/Resolved]
  - Acute myeloid leukaemia [Fatal]
  - Graft versus host disease in gastrointestinal tract [Unknown]
  - Febrile neutropenia [Recovered/Resolved]
  - Off label use [Unknown]
  - Mucosal inflammation [Recovered/Resolved]
  - Venoocclusive liver disease [Recovered/Resolved]
